FAERS Safety Report 16780752 (Version 1)
Quarter: 2019Q3

REPORT INFORMATION
  Report Type: Spontaneous
  Country: US (occurrence: US)
  Receive Date: 20190717
  Receipt Date: 20190717
  Transmission Date: 20191005
  Serious: Yes (Hospitalization)
  Sender: FDA-Public Use
  Company Number: None

PATIENT
  Age: 29 Year
  Sex: Male

DRUGS (7)
  1. SYMBICORT AER [Concomitant]
  2. SIMPONI [Suspect]
     Active Substance: GOLIMUMAB
     Indication: RHEUMATOID ARTHRITIS
     Route: 058
     Dates: start: 20190621
  3. ZYRTEC ALLGY TAB [Concomitant]
  4. TYLENOL TAB [Concomitant]
  5. MELOXICAM. [Concomitant]
     Active Substance: MELOXICAM
  6. NAPROXEN DR TAB [Concomitant]
  7. PROAIR HFA AER [Concomitant]

REACTIONS (4)
  - Headache [None]
  - Pulmonary congestion [None]
  - Nasopharyngitis [None]
  - Pharyngitis streptococcal [None]

NARRATIVE: CASE EVENT DATE: 20190620
